FAERS Safety Report 7267486-9 (Version None)
Quarter: 2011Q1

REPORT INFORMATION
  Report Type: 
  Country: None (occurrence: None)
  Receive Date: 20110201
  Receipt Date: 20110121
  Transmission Date: 20110831
  Serious: Yes (Hospitalization)
  Sender: FDA-Public Use
  Company Number: JP-SANOFI-AVENTIS-2010SA050401

PATIENT
  Age: 65 Year
  Sex: Female
  Weight: 44 kg

DRUGS (12)
  1. OXALIPLATIN [Suspect]
     Indication: RECTAL CANCER
     Route: 041
     Dates: start: 20100723, end: 20100723
  2. GLUCOSE [Concomitant]
     Route: 041
  3. POTASSIUM CHLORIDE [Concomitant]
     Indication: ELECTROLYTE SUBSTITUTION THERAPY
     Dosage: TID/ BID
     Route: 041
     Dates: start: 20100727, end: 20100730
  4. ZOMETA [Concomitant]
     Indication: METASTASES TO BONE
     Route: 041
     Dates: start: 20100725, end: 20100725
  5. GRANISETRON HCL [Concomitant]
     Indication: PREMEDICATION
     Route: 041
     Dates: start: 20100723, end: 20100727
  6. 5-FU [Concomitant]
     Indication: RECTAL CANCER
     Route: 040
     Dates: start: 20100723, end: 20100723
  7. 5-FU [Concomitant]
     Route: 041
     Dates: start: 20100723, end: 20100723
  8. DEXAMETHASONE SODIUM PHOSPHATE [Concomitant]
     Indication: PREMEDICATION
     Route: 041
     Dates: start: 20100723, end: 20100727
  9. GRANISETRON HCL [Concomitant]
     Indication: VOMITING
     Route: 041
     Dates: start: 20100723, end: 20100727
  10. SEISHOKU [Concomitant]
     Indication: ELECTROLYTE SUBSTITUTION THERAPY
     Dosage: SID, BID
     Route: 041
     Dates: start: 20100726, end: 20100728
  11. AMINO ACIDS NOS/ELECTROLYTES NOS/MALIC ACID [Concomitant]
     Indication: ELECTROLYTE SUBSTITUTION THERAPY
     Dosage: SID, QID, BID, SID, TID, SID
     Route: 041
     Dates: start: 20100725, end: 20100804
  12. CALCIUM LEVOFOLINATE [Concomitant]
     Indication: RECTAL CANCER
     Route: 041
     Dates: start: 20100723, end: 20100723

REACTIONS (1)
  - INAPPROPRIATE ANTIDIURETIC HORMONE SECRETION [None]
